FAERS Safety Report 5200377-3 (Version None)
Quarter: 2007Q1

REPORT INFORMATION
  Report Type: 
  Country: None (occurrence: None)
  Receive Date: 20070105
  Receipt Date: 20061226
  Transmission Date: 20070707
  Serious: Yes (Hospitalization)
  Sender: FDA-Public Use
  Company Number: IN-PFIZER INC-2006156071

PATIENT
  Sex: Male
  Weight: 50 kg

DRUGS (1)
  1. SU-011,248 [Suspect]
     Indication: GASTROINTESTINAL STROMAL TUMOUR
     Route: 048

REACTIONS (3)
  - BLOOD PRESSURE INCREASED [None]
  - DYSPNOEA PAROXYSMAL NOCTURNAL [None]
  - PLEURAL EFFUSION [None]
